FAERS Safety Report 5423126-2 (Version None)
Quarter: 2007Q3

REPORT INFORMATION
  Report Type: 
  Country: None (occurrence: None)
  Receive Date: 20070821
  Receipt Date: 20070808
  Transmission Date: 20080115
  Serious: Yes (Hospitalization)
  Sender: FDA-Public Use
  Company Number: S07-FRA-03436-01

PATIENT
  Age: 69 Year
  Sex: Male

DRUGS (4)
  1. AOTAL         (ACAMPROSATE) [Suspect]
     Indication: ALCOHOLISM
     Dosage: 666 MG TID PO
     Route: 048
     Dates: start: 20070505, end: 20070605
  2. DISULFIRAM [Suspect]
     Indication: ALCOHOLISM
     Dosage: 500 MG QD PO
     Route: 048
     Dates: start: 20070505, end: 20070605
  3. ATARAX [Suspect]
     Indication: ANXIETY
     Dosage: 100 MG QD PO
     Route: 048
     Dates: start: 20070505, end: 20070605
  4. VALSARTAN AND HYDROCHLOROTHIAZIDE [Concomitant]

REACTIONS (5)
  - ALCOHOL USE [None]
  - DEPRESSED LEVEL OF CONSCIOUSNESS [None]
  - DISTURBANCE IN ATTENTION [None]
  - MALAISE [None]
  - REPETITIVE SPEECH [None]
